FAERS Safety Report 7815667-5 (Version None)
Quarter: 2011Q4

REPORT INFORMATION
  Report Type: 
  Country: None (occurrence: None)
  Receive Date: 20111014
  Receipt Date: 20111013
  Transmission Date: 20120403
  Serious: Yes (Death)
  Sender: FDA-Public Use
  Company Number: BR-B.I. PHARMACEUTICALS,INC./RIDGEFIELD-2011-BR-01090BR

PATIENT
  Age: 67 Year
  Sex: Female

DRUGS (3)
  1. ALENIA [Concomitant]
  2. BUDESONIDE [Concomitant]
  3. SPIRIVA RESPIMAT [Suspect]
     Indication: ASTHMA
     Dates: start: 20010101, end: 20110911

REACTIONS (1)
  - PNEUMONIA [None]
